FAERS Safety Report 4956166-8 (Version None)
Quarter: 2006Q1

REPORT INFORMATION
  Report Type: 
  Country: None (occurrence: None)
  Receive Date: 20060322
  Receipt Date: 20060202
  Transmission Date: 20060701
  Serious: Yes (Hospitalization)
  Sender: FDA-Public Use
  Company Number: 57819

PATIENT
  Age: 43 Year
  Sex: Male

DRUGS (1)
  1. NIX [Suspect]
     Indication: LICE INFESTATION
     Dosage: TOPICAL APPLICATION TO BODY AND H
     Dates: start: 20060201, end: 20060201

REACTIONS (2)
  - HEADACHE [None]
  - PNEUMONIA [None]
